FAERS Safety Report 14988075 (Version 1)
Quarter: 2018Q2

REPORT INFORMATION
  Report Type: Spontaneous
  Country: US (occurrence: US)
  Receive Date: 20180608
  Receipt Date: 20180608
  Transmission Date: 20180711
  Serious: Yes (Hospitalization)
  Sender: FDA-Public Use
  Company Number: US-PFIZER INC-2013199965

PATIENT
  Age: 31 Year
  Sex: Male
  Weight: 168.5 kg

DRUGS (7)
  1. NOVOLIN 70/30 [Concomitant]
     Active Substance: INSULIN HUMAN
     Indication: DIABETES MELLITUS
     Dosage: UNK
  2. LISINOPRIL. [Concomitant]
     Active Substance: LISINOPRIL
     Indication: HYPERTENSION
     Dosage: 10 MG, DAILY
  3. CEFEPIME HCL [Suspect]
     Active Substance: CEFEPIME HYDROCHLORIDE
     Indication: STAPHYLOCOCCAL INFECTION
     Dosage: 2 G EVERY 8 HOURS
     Route: 042
  4. VANCOMYCIN HCL [Suspect]
     Active Substance: VANCOMYCIN HYDROCHLORIDE
     Indication: STAPHYLOCOCCAL INFECTION
     Dosage: 2 G, EVERY 6 HOUR
     Route: 042
  5. METFORMIN [Concomitant]
     Active Substance: METFORMIN HYDROCHLORIDE
     Indication: DIABETES MELLITUS
     Dosage: UNK
  6. METRONIDAZOLE. [Concomitant]
     Active Substance: METRONIDAZOLE
     Indication: STAPHYLOCOCCAL INFECTION
     Dosage: 500 MG, EVERY 6 HOURS
     Route: 042
  7. PIPERACILLIN/TAZOBACTAM [Suspect]
     Active Substance: PIPERACILLIN SODIUM\TAZOBACTAM SODIUM
     Indication: STAPHYLOCOCCAL INFECTION
     Dosage: UNK

REACTIONS (11)
  - Haematuria [Recovering/Resolving]
  - Renal tubular necrosis [Recovering/Resolving]
  - Drug level increased [None]
  - Corynebacterium infection [None]
  - Nephropathy toxic [None]
  - Acute kidney injury [Recovering/Resolving]
  - Haemodialysis [None]
  - Proteinuria [Recovering/Resolving]
  - Streptococcal infection [None]
  - Fluid overload [None]
  - Staphylococcal infection [None]
